FAERS Safety Report 8079962-X (Version None)
Quarter: 2012Q1

REPORT INFORMATION
  Report Type: 
  Country: None (occurrence: None)
  Receive Date: 20120128
  Receipt Date: 20110802
  Transmission Date: 20120608
  Serious: No
  Sender: FDA-Public Use
  Company Number: US-ABBOTT-11P-163-0843618-00

PATIENT
  Sex: Male
  Weight: 174.79 kg

DRUGS (5)
  1. HUMIRA [Suspect]
     Indication: PSORIASIS
     Dates: start: 20110701
  2. GABAPENTIN [Concomitant]
     Indication: ARTHRALGIA
  3. AMITRIPTYLINE HCL [Concomitant]
     Indication: ARTHRALGIA
  4. REGLAN [Concomitant]
     Indication: GASTRIC DISORDER
  5. RANEVELA [Concomitant]
     Indication: ARTHRALGIA

REACTIONS (1)
  - ARTHRALGIA [None]
